FAERS Safety Report 11398110 (Version 1)
Quarter: 2015Q3

REPORT INFORMATION
  Report Type: Report from Study
  Country: US (occurrence: US)
  Receive Date: 20150820
  Receipt Date: 20150820
  Transmission Date: 20151125
  Serious: Yes (Other)
  Sender: FDA-Public Use
  Company Number: US-AMGEN-USASL2015082016

PATIENT
  Age: 60 Year
  Sex: Female

DRUGS (2)
  1. MORPHINE [Suspect]
     Active Substance: MORPHINE
     Indication: PRODUCT USED FOR UNKNOWN INDICATION
     Dosage: UNK
     Route: 065
  2. ENBREL [Suspect]
     Active Substance: ETANERCEPT
     Indication: PSORIATIC ARTHROPATHY
     Dosage: UNK UNK, QWK
     Route: 065
     Dates: end: 201403

REACTIONS (10)
  - Hernia repair [Unknown]
  - Breast operation [Unknown]
  - Infection [Unknown]
  - Obesity [Unknown]
  - Skin disorder [Unknown]
  - Surgery [Unknown]
  - Pruritus allergic [Unknown]
  - Intestinal obstruction [Unknown]
  - Abscess [Unknown]
  - Impaired healing [Unknown]

NARRATIVE: CASE EVENT DATE: 2014
